FAERS Safety Report 5906677-3 (Version None)
Quarter: 2008Q3

REPORT INFORMATION
  Report Type: 
  Country: None (occurrence: None)
  Receive Date: 20080930
  Receipt Date: 20080922
  Transmission Date: 20090109
  Serious: Yes (Other)
  Sender: FDA-Public Use
  Company Number: GXKR2008GB09056

PATIENT
  Age: 51 Year
  Sex: Male
  Weight: 70 kg

DRUGS (1)
  1. CO-CODAMOL (NGX)(ACETAMINOPHEN (PARACETAMOL), CODEINE PHOSPHATE) UNKNO [Suspect]
     Indication: MUSCLE STRAIN
     Dosage: 2 DF, QID, ORAL
     Route: 048
     Dates: start: 20080601, end: 20080601

REACTIONS (3)
  - HEPATITIS [None]
  - PAIN IN EXTREMITY [None]
  - THROMBOCYTHAEMIA [None]
